FAERS Safety Report 25766116 (Version 1)
Quarter: 2025Q3

REPORT INFORMATION
  Report Type: Spontaneous
  Country: US (occurrence: US)
  Receive Date: 20250905
  Receipt Date: 20250905
  Transmission Date: 20251021
  Serious: No
  Sender: DOMPE FARMACEUTICI
  Company Number: US-FARMAPROD-202408-2813

PATIENT
  Sex: Female

DRUGS (51)
  1. OXERVATE [Suspect]
     Active Substance: CENEGERMIN-BKBJ
     Indication: Neurotrophic keratopathy
     Route: 047
     Dates: start: 20240729
  2. REFRESH LIQUIGEL [Concomitant]
     Active Substance: CARBOXYMETHYLCELLULOSE SODIUM
  3. REFRESH LIQUIGEL [Concomitant]
     Active Substance: CARBOXYMETHYLCELLULOSE SODIUM
  4. REFRESH OPTIVE MEGA-3 [Concomitant]
     Active Substance: CARBOXYMETHYLCELLULOSE SODIUM\GLYCERIN\POLYSORBATE 80
  5. COLLAGENASE POWDER [Concomitant]
  6. BIOTIN [Concomitant]
     Active Substance: BIOTIN
  7. BIOTIN [Concomitant]
     Active Substance: BIOTIN
  8. FISH OIL [Concomitant]
     Active Substance: FISH OIL
  9. FISH OIL [Concomitant]
     Active Substance: FISH OIL
  10. VITAMIN C [Concomitant]
     Active Substance: ASCORBIC ACID
  11. VITAMIN C [Concomitant]
     Active Substance: ASCORBIC ACID
  12. ZINC [Concomitant]
     Active Substance: ZINC
  13. ZINC [Concomitant]
     Active Substance: ZINC
  14. MAGNESIUM [Concomitant]
     Active Substance: MAGNESIUM
  15. MAGNESIUM [Concomitant]
     Active Substance: MAGNESIUM
  16. PROBIOTICS NOS [Concomitant]
     Active Substance: PROBIOTICS NOS
  17. PROBIOTICS NOS [Concomitant]
     Active Substance: PROBIOTICS NOS
  18. MELATONIN [Concomitant]
     Active Substance: MELATONIN
  19. MELATONIN [Concomitant]
     Active Substance: MELATONIN
  20. VITAMIN D3 [Concomitant]
     Active Substance: CHOLECALCIFEROL
  21. ZYRTEC [Concomitant]
     Active Substance: CETIRIZINE HYDROCHLORIDE
  22. ZYRTEC [Concomitant]
     Active Substance: CETIRIZINE HYDROCHLORIDE
  23. TRAZODONE HCL [Concomitant]
     Active Substance: TRAZODONE HYDROCHLORIDE
  24. TRAZODONE HCL [Concomitant]
     Active Substance: TRAZODONE HYDROCHLORIDE
  25. AIRSUPRA [Concomitant]
     Active Substance: ALBUTEROL SULFATE\BUDESONIDE
  26. AIRSUPRA [Concomitant]
     Active Substance: ALBUTEROL SULFATE\BUDESONIDE
  27. TRELEGY ELLIPTA [Concomitant]
     Active Substance: FLUTICASONE FUROATE\UMECLIDINIUM BROMIDE\VILANTEROL TRIFENATATE
  28. TRELEGY ELLIPTA [Concomitant]
     Active Substance: FLUTICASONE FUROATE\UMECLIDINIUM BROMIDE\VILANTEROL TRIFENATATE
  29. TYLENOL [Concomitant]
     Active Substance: ACETAMINOPHEN
  30. TYLENOL [Concomitant]
     Active Substance: ACETAMINOPHEN
  31. IBUPROFEN [Concomitant]
     Active Substance: IBUPROFEN
  32. IBUPROFEN [Concomitant]
     Active Substance: IBUPROFEN
  33. TIZANIDINE HYDROCHLORIDE [Concomitant]
     Active Substance: TIZANIDINE HYDROCHLORIDE
  34. TIZANIDINE HYDROCHLORIDE [Concomitant]
     Active Substance: TIZANIDINE HYDROCHLORIDE
  35. ALPRAZOLAM [Concomitant]
     Active Substance: ALPRAZOLAM
  36. ALPRAZOLAM [Concomitant]
     Active Substance: ALPRAZOLAM
  37. BACLOFEN [Concomitant]
     Active Substance: BACLOFEN
  38. BACLOFEN [Concomitant]
     Active Substance: BACLOFEN
  39. MOTEGRITY [Concomitant]
     Active Substance: PRUCALOPRIDE SUCCINATE
  40. MOTEGRITY [Concomitant]
     Active Substance: PRUCALOPRIDE SUCCINATE
  41. DEMANNOSE [Concomitant]
     Active Substance: DEMANNOSE
  42. DEMANNOSE [Concomitant]
     Active Substance: DEMANNOSE
  43. CRANBERRY [Concomitant]
     Active Substance: CRANBERRY
  44. CRANBERRY [Concomitant]
     Active Substance: CRANBERRY
  45. ESTRADIOL [Concomitant]
     Active Substance: ESTRADIOL
  46. ESTRADIOL [Concomitant]
     Active Substance: ESTRADIOL
  47. FUROSEMIDE [Concomitant]
     Active Substance: FUROSEMIDE
  48. FUROSEMIDE [Concomitant]
     Active Substance: FUROSEMIDE
  49. DILTIAZEM [Concomitant]
     Active Substance: DILTIAZEM
  50. DILTIAZEM [Concomitant]
     Active Substance: DILTIAZEM
  51. MOMETASONE FUROATE [Concomitant]
     Active Substance: MOMETASONE FUROATE

REACTIONS (4)
  - Eye irritation [Unknown]
  - Periorbital pain [Unknown]
  - Eyelid irritation [Not Recovered/Not Resolved]
  - Foreign body sensation in eyes [Not Recovered/Not Resolved]
